FAERS Safety Report 6518937-6 (Version None)
Quarter: 2009Q4

REPORT INFORMATION
  Report Type: 
  Country: None (occurrence: None)
  Receive Date: 20091228
  Receipt Date: 20091222
  Transmission Date: 20100525
  Serious: Yes (Hospitalization)
  Sender: FDA-Public Use
  Company Number: FR-BRISTOL-MYERS SQUIBB COMPANY-14872808

PATIENT
  Age: 67 Year
  Sex: Male

DRUGS (2)
  1. ORENCIA [Suspect]
     Indication: RHEUMATOID ARTHRITIS
     Dosage: 24 TH INFUSION. PREVIOUS INFUSION ON MAR09 AND JUL09.
     Dates: start: 20080303, end: 20091125
  2. SYNACTHENE [Suspect]
     Route: 042
     Dates: start: 20091124, end: 20091125

REACTIONS (4)
  - AORTIC DILATATION [None]
  - AORTIC VALVE INCOMPETENCE [None]
  - INFUSION RELATED REACTION [None]
  - MYOCARDIAL INFARCTION [None]
